FAERS Safety Report 7737996-6 (Version None)
Quarter: 2011Q3

REPORT INFORMATION
  Report Type: 
  Country: None (occurrence: None)
  Receive Date: 20110908
  Receipt Date: 20110829
  Transmission Date: 20111222
  Serious: Yes (Life-Threatening, Other)
  Sender: FDA-Public Use
  Company Number: US-BAYER-2010-003178

PATIENT
  Age: 30 Year
  Sex: Female
  Weight: 53 kg

DRUGS (7)
  1. PROZAC [Concomitant]
  2. XANAX [Concomitant]
  3. HYDROCODONE [Concomitant]
  4. OXYCODONE HCL [Concomitant]
  5. DROSPIRENONE AND ETHINYL ESTRADIOL [Suspect]
     Indication: ORAL CONTRACEPTION
     Dosage: UNK
     Dates: start: 20080101, end: 20100101
  6. YAZ [Suspect]
     Indication: ORAL CONTRACEPTION
     Dosage: UNK
     Dates: start: 20080101, end: 20100101
  7. ZOLOFT [Concomitant]

REACTIONS (7)
  - GALLBLADDER NON-FUNCTIONING [None]
  - CHOLECYSTITIS ACUTE [None]
  - CHOLECYSTITIS CHRONIC [None]
  - CHOLELITHIASIS [None]
  - ORGAN FAILURE [None]
  - INJURY [None]
  - PAIN [None]
